FAERS Safety Report 14497650 (Version 2)
Quarter: 2018Q2

REPORT INFORMATION
  Report Type: Spontaneous
  Country: FR (occurrence: FR)
  Receive Date: 20180207
  Receipt Date: 20180418
  Transmission Date: 20180711
  Serious: Yes (Other)
  Sender: FDA-Public Use
  Company Number: PHHY2018FR019155

PATIENT
  Age: 33 Year
  Sex: Female
  Weight: 53 kg

DRUGS (4)
  1. SEROPRAM (CITALOPRAM HYDROBROMIDE) [Suspect]
     Active Substance: CITALOPRAM HYDROBROMIDE
     Indication: DEPRESSION
     Dosage: 10 MG, QD
     Route: 048
     Dates: start: 201106
  2. VOLTARENE (DICLOFENAC SODIUM) [Suspect]
     Active Substance: DICLOFENAC SODIUM
     Indication: ANKYLOSING SPONDYLITIS
     Dosage: 150 MG, QD
     Route: 048
     Dates: start: 20110620
  3. REMICADE [Suspect]
     Active Substance: INFLIXIMAB
     Indication: ANKYLOSING SPONDYLITIS
     Dosage: 1200 MG, UNK (4 MG/KG/CURE)
     Route: 042
     Dates: start: 201012, end: 20110707
  4. SALAZOPYRINE [Suspect]
     Active Substance: SULFASALAZINE
     Indication: ANKYLOSING SPONDYLITIS
     Dosage: 2000 MG, QD
     Route: 048
     Dates: start: 2003

REACTIONS (1)
  - Abortion spontaneous [Recovered/Resolved with Sequelae]

NARRATIVE: CASE EVENT DATE: 20110713
